FAERS Safety Report 10223890 (Version 1)
Quarter: 2014Q2

REPORT INFORMATION
  Report Type: Spontaneous
  Country: FR (occurrence: FR)
  Receive Date: 20140609
  Receipt Date: 20140609
  Transmission Date: 20141212
  Serious: Yes (Other)
  Sender: FDA-Public Use
  Company Number: FR-RANBAXY-2014RR-81869

PATIENT
  Age: 63 Year
  Sex: Female

DRUGS (1)
  1. PARACETAMOL RANBAXY 1G COMPRIME [Suspect]
     Indication: PRODUCT USED FOR UNKNOWN INDICATION
     Dosage: 1 G, SINGLE
     Route: 048
     Dates: start: 20120626, end: 20120626

REACTIONS (1)
  - Angioedema [Recovered/Resolved]
